FAERS Safety Report 4576637-6 (Version None)
Quarter: 2005Q1

REPORT INFORMATION
  Report Type: 
  Country: None (occurrence: None)
  Receive Date: 20050127
  Receipt Date: 20041006
  Transmission Date: 20050727
  Serious: No
  Sender: FDA-Public Use
  Company Number: USA041080307

PATIENT
  Age: 15 Year
  Sex: Male
  Weight: 62 kg

DRUGS (1)
  1. STRATTERA [Suspect]
     Indication: ATTENTION DEFICIT/HYPERACTIVITY DISORDER
     Dates: start: 20040930

REACTIONS (2)
  - MYDRIASIS [None]
  - PUPILLARY REFLEX IMPAIRED [None]
